FAERS Safety Report 15660897 (Version 1)
Quarter: 2018Q4

REPORT INFORMATION
  Report Type: Spontaneous
  Country: GR (occurrence: GR)
  Receive Date: 20181127
  Receipt Date: 20181127
  Transmission Date: 20190205
  Serious: Yes (Hospitalization)
  Sender: FDA-Public Use
  Company Number: GR-BAUSCH-BL-2018-032835

PATIENT
  Age: 72 Year
  Sex: Male

DRUGS (4)
  1. IRBESARTAN. [Suspect]
     Active Substance: IRBESARTAN
     Indication: CARDIAC FAILURE
     Route: 065
  2. FUROSEMIDE/AMILORIDE [Suspect]
     Active Substance: AMILORIDE HYDROCHLORIDE\FUROSEMIDE
     Indication: CARDIAC FAILURE
     Dosage: 1 DOSAGE FORM EQUAL TO 40MG FUROSEMIDE/ 5MG AMILORIDE
     Route: 065
  3. CARVEDILOL. [Suspect]
     Active Substance: CARVEDILOL
     Indication: CARDIAC FAILURE
     Route: 065
  4. DICLOFENAC [Suspect]
     Active Substance: DICLOFENAC
     Indication: CARDIAC FAILURE
     Route: 065

REACTIONS (2)
  - Muscular weakness [Unknown]
  - Hyperkalaemia [Unknown]
